FAERS Safety Report 8383817-0 (Version None)
Quarter: 2012Q1

REPORT INFORMATION
  Report Type: 
  Country: None (occurrence: None)
  Receive Date: 20120323
  Receipt Date: 20110714
  Transmission Date: 20120608
  Serious: Yes (Disabling, Other)
  Sender: FDA-Public Use
  Company Number: 163-21880-11030767

PATIENT
  Age: 67 Year
  Sex: Male

DRUGS (2)
  1. REVLIMID [Suspect]
     Indication: MULTIPLE MYELOMA
     Dosage: 10 MG, 1 IN 1 D, PO
     Route: 048
     Dates: start: 20110124, end: 20110513
  2. ANTIBIOTICS (ANTIBIOTICS) [Concomitant]

REACTIONS (2)
  - PANCYTOPENIA [None]
  - DIARRHOEA [None]
